FAERS Safety Report 5899991-1 (Version None)
Quarter: 2008Q3

REPORT INFORMATION
  Report Type: 
  Country: None (occurrence: None)
  Receive Date: 20080926
  Receipt Date: 20080919
  Transmission Date: 20090109
  Serious: Yes (Other)
  Sender: FDA-Public Use
  Company Number: IE-ASTRAZENECA-2008GB01776

PATIENT
  Sex: Female

DRUGS (3)
  1. SEROQUEL [Suspect]
     Indication: BIPOLAR DISORDER
     Route: 048
     Dates: start: 20080401, end: 20080601
  2. LASIX [Concomitant]
     Dosage: 20 MG
     Route: 048
  3. ANAESTHETIC [Concomitant]

REACTIONS (1)
  - GENERALISED OEDEMA [None]
